FAERS Safety Report 11930467 (Version 1)
Quarter: 2016Q1

REPORT INFORMATION
  Report Type: Spontaneous
  Country: KR (occurrence: KR)
  Receive Date: 20160120
  Receipt Date: 20160120
  Transmission Date: 20160526
  Serious: Yes (Death)
  Sender: FDA-Public Use
  Company Number: CONCORDIA PHARMACEUTICALS INC.-CO-OR-KR-2016-001

PATIENT
  Age: 90 Year
  Sex: Male

DRUGS (7)
  1. ORAPRED ODT [Suspect]
     Active Substance: PREDNISOLONE SODIUM PHOSPHATE
     Indication: VOMITING
  2. FUROSEMIDE. [Concomitant]
     Active Substance: FUROSEMIDE
  3. ALBUMIN [Suspect]
     Active Substance: ALBUMIN (HUMAN)
  4. ALDACTONE [Concomitant]
     Active Substance: SPIRONOLACTONE
  5. ORAPRED ODT [Suspect]
     Active Substance: PREDNISOLONE SODIUM PHOSPHATE
     Indication: NAUSEA
  6. ORAPRED ODT [Suspect]
     Active Substance: PREDNISOLONE SODIUM PHOSPHATE
     Indication: ASTHENIA
     Route: 048
  7. TERLIPRESSIN [Suspect]
     Active Substance: TERLIPRESSIN

REACTIONS (2)
  - Tumour lysis syndrome [Fatal]
  - Multiple organ dysfunction syndrome [None]
